FAERS Safety Report 12624461 (Version 4)
Quarter: 2017Q1

REPORT INFORMATION
  Report Type: Spontaneous
  Country: US (occurrence: US)
  Receive Date: 20160805
  Receipt Date: 20170324
  Transmission Date: 20170428
  Serious: Yes (Hospitalization, Other)
  Sender: FDA-Public Use
  Company Number: US-BRISTOL-MYERS SQUIBB COMPANY-BMS-2016-061775

PATIENT
  Age: 26 Year
  Sex: Female

DRUGS (4)
  1. NULOJIX [Suspect]
     Active Substance: BELATACEPT
     Indication: PRODUCT USED FOR UNKNOWN INDICATION
     Dosage: 1037.5 MG, UNK
     Route: 042
     Dates: start: 20160505
  2. NULOJIX [Suspect]
     Active Substance: BELATACEPT
     Indication: RENAL TRANSPLANT
     Dosage: 1037.5 MG, UNK
     Route: 042
     Dates: start: 20160430
  3. NULOJIX [Suspect]
     Active Substance: BELATACEPT
     Indication: PRODUCT USED FOR UNKNOWN INDICATION
     Dosage: 1037.5 MG, UNK
     Route: 042
     Dates: start: 20160513
  4. THYMOGLOBULIN [Concomitant]
     Active Substance: LAPINE T-LYMPHOCYTE IMMUNE GLOBULIN
     Indication: PRODUCT USED FOR UNKNOWN INDICATION
     Dosage: 150 MG, UNK
     Route: 042
     Dates: start: 20160430, end: 20160504

REACTIONS (3)
  - Delayed graft function [Unknown]
  - Renal vein thrombosis [Unknown]
  - Off label use [Unknown]
